FAERS Safety Report 5148899-8 (Version None)
Quarter: 2006Q4

REPORT INFORMATION
  Report Type: 
  Country: None (occurrence: None)
  Receive Date: 20061108
  Receipt Date: 20061025
  Transmission Date: 20070319
  Serious: Yes (Death)
  Sender: FDA-Public Use
  Company Number: S06-USA-04663-01

PATIENT
  Age: 34 Year
  Sex: Male

DRUGS (2)
  1. LEXAPRO [Suspect]
     Indication: ANXIETY
     Dosage: 10 MG QD PO
     Route: 048
     Dates: start: 20041011, end: 20041017
  2. LEXAPRO [Suspect]
     Indication: DEPRESSION
     Dosage: 10 MG QD PO
     Route: 048
     Dates: start: 20041011, end: 20041017

REACTIONS (9)
  - COMPLETED SUICIDE [None]
  - DEPRESSED MOOD [None]
  - DEPRESSION [None]
  - FEELING JITTERY [None]
  - INJURY ASPHYXIATION [None]
  - INSOMNIA [None]
  - MOOD SWINGS [None]
  - PARANOIA [None]
  - SELF-INJURIOUS IDEATION [None]
